FAERS Safety Report 5421635-3 (Version None)
Quarter: 2007Q3

REPORT INFORMATION
  Report Type: 
  Country: None (occurrence: None)
  Receive Date: 20070821
  Receipt Date: 20070809
  Transmission Date: 20080115
  Serious: Yes (Other)
  Sender: FDA-Public Use
  Company Number: US-PFIZER INC-2007051927

PATIENT
  Sex: Male
  Weight: 73.5 kg

DRUGS (10)
  1. TIKOSYN [Interacting]
     Indication: ATRIAL FIBRILLATION
  2. JANUVIA [Interacting]
     Indication: TYPE 2 DIABETES MELLITUS
  3. ZETIA [Suspect]
  4. COUMADIN [Concomitant]
     Dosage: DAILY DOSE:1MG-TEXT:1 MG AT NIGHT
  5. ASPIRIN [Concomitant]
  6. OMEPRAZOLE [Concomitant]
  7. POTASSIUM CHLORIDE [Concomitant]
  8. ISOSORBIDE MONONITRATE [Concomitant]
  9. BUMEX [Concomitant]
  10. ATENOLOL [Concomitant]

REACTIONS (11)
  - ABDOMINAL DISTENSION [None]
  - ABDOMINAL PAIN [None]
  - DEPRESSION [None]
  - DIABETES MELLITUS [None]
  - DIZZINESS [None]
  - DRUG INTERACTION [None]
  - FATIGUE [None]
  - HOT FLUSH [None]
  - LEFT VENTRICULAR FAILURE [None]
  - NERVOUSNESS [None]
  - VISION BLURRED [None]
